FAERS Safety Report 6523948-0 (Version None)
Quarter: 2009Q4

REPORT INFORMATION
  Report Type: 
  Country: None (occurrence: None)
  Receive Date: 20091231
  Receipt Date: 20091223
  Transmission Date: 20100525
  Serious: Yes (Hospitalization)
  Sender: FDA-Public Use
  Company Number: GB-BRISTOL-MYERS SQUIBB COMPANY-14169627

PATIENT
  Age: 16 Year
  Sex: Female
  Weight: 50 kg

DRUGS (8)
  1. SUSTIVA [Suspect]
     Indication: VIRAL INFECTION
     Route: 048
     Dates: start: 20080205, end: 20080320
  2. TERBUTALINE SULFATE [Concomitant]
     Indication: ASTHMA
  3. AMOXICILLIN AND CLAVULANATE POTASSIUM [Concomitant]
     Indication: LOWER RESPIRATORY TRACT INFECTION
     Route: 048
     Dates: start: 20080301
  4. KIVEXA [Concomitant]
     Indication: VIRAL INFECTION
     Dosage: 1 DOSAGE FORM = 1 TABLET (ABACAVIR 600 MG/LAMIVUDINE 300 MG)
     Dates: start: 20080205
  5. NORDETTE-28 [Concomitant]
     Indication: ASTHMA
     Dosage: 1 DOSAGE FORM = 30, UNITS NOT SPECIFIED, LEVONOGESTREL 150 MCG/ETHINYLESTRADIOL 30 MCG
     Route: 055
  6. CO-TRIMOXAZOLE [Concomitant]
     Indication: INFECTION PROPHYLAXIS
     Route: 048
     Dates: start: 20080205
  7. ABACAVIR [Concomitant]
  8. LAMIVUDINE [Concomitant]

REACTIONS (14)
  - ABDOMINAL PAIN [None]
  - ANTIVIRAL DRUG LEVEL ABOVE THERAPEUTIC [None]
  - CONFUSIONAL STATE [None]
  - COUGH [None]
  - FATIGUE [None]
  - HEADACHE [None]
  - IRRITABILITY [None]
  - MALAISE [None]
  - NAUSEA [None]
  - PAIN [None]
  - PARAESTHESIA ORAL [None]
  - PRURITUS [None]
  - RASH [None]
  - VOMITING [None]
